FAERS Safety Report 22917639 (Version 4)
Quarter: 2023Q4

REPORT INFORMATION
  Report Type: Spontaneous
  Country: IN (occurrence: IN)
  Receive Date: 20230907
  Receipt Date: 20231120
  Transmission Date: 20240110
  Serious: Yes (Other)
  Sender: FDA-Public Use
  Company Number: IN-PFIZER INC-PV202300150865

PATIENT
  Age: 62 Year
  Sex: Male

DRUGS (7)
  1. AXITINIB [Suspect]
     Active Substance: AXITINIB
     Indication: Metastatic renal cell carcinoma
     Dosage: 5 MG, 2X/DAY
     Route: 048
     Dates: start: 20230511
  2. DENOSUMAB [Concomitant]
     Active Substance: DENOSUMAB
     Dosage: 120 MG, EVERY 4 WEEKLY
     Route: 058
  3. VOTRIENT [Concomitant]
     Active Substance: PAZOPANIB HYDROCHLORIDE
     Dosage: UNK
     Dates: start: 20201105
  4. NIVOLUMAB [Concomitant]
     Active Substance: NIVOLUMAB
     Dosage: 200 MG, Q 2 WEEKLY
  5. NIVOLUMAB [Concomitant]
     Active Substance: NIVOLUMAB
     Dosage: 400 MG
  6. CABOZANTINIB [Concomitant]
     Active Substance: CABOZANTINIB
     Dosage: 40 MG, 1X/DAY
  7. ZOLEDRONIC ACID [Concomitant]
     Active Substance: ZOLEDRONIC ACID
     Dosage: UNK

REACTIONS (9)
  - Ureteric obstruction [Unknown]
  - Biliary obstruction [Unknown]
  - Biliary obstruction [Unknown]
  - Cerebral ischaemia [Unknown]
  - Hypoaesthesia oral [Unknown]
  - Vertebral lesion [Unknown]
  - Performance status decreased [Unknown]
  - Secondary adrenocortical insufficiency [Unknown]
  - Neoplasm progression [Unknown]

NARRATIVE: CASE EVENT DATE: 20230519
